FAERS Safety Report 14744718 (Version 1)
Quarter: 2018Q2

REPORT INFORMATION
  Report Type: Spontaneous
  Country: FR (occurrence: FR)
  Receive Date: 20180411
  Receipt Date: 20180411
  Transmission Date: 20180711
  Serious: Yes (Other)
  Sender: FDA-Public Use
  Company Number: FR-MERCK KGAA-2045507

PATIENT
  Age: 58 Year
  Sex: Female

DRUGS (1)
  1. NOVOTHYROX [Suspect]
     Active Substance: LEVOTHYROXINE SODIUM
     Indication: HYPOTHYROIDISM

REACTIONS (11)
  - Pruritus [None]
  - Diarrhoea [None]
  - Fatigue [None]
  - Rash [None]
  - Alopecia [None]
  - Myalgia [None]
  - Anger [None]
  - Migraine [None]
  - Dizziness [None]
  - Aggression [None]
  - Emotional distress [None]
